FAERS Safety Report 23342980 (Version 1)
Quarter: 2023Q4

REPORT INFORMATION
  Report Type: Spontaneous
  Country: US (occurrence: None)
  Receive Date: 20231226
  Receipt Date: 20231226
  Transmission Date: 20240110
  Serious: No
  Sender: FDA-Public Use
  Company Number: None

PATIENT
  Age: 48 Year
  Sex: Female
  Weight: 113.4 kg

DRUGS (3)
  1. RINVOQ [Suspect]
     Active Substance: UPADACITINIB
     Indication: Crohn^s disease
     Dosage: TAKE 1 TABLET BY MOUTH DAILY AS DIRECTED.  BEGIN AFTER 12 WEEKS  OF THE 45MG DOSING
     Route: 048
     Dates: start: 202309
  2. RINVOQ [Suspect]
     Active Substance: UPADACITINIB
     Indication: Gastroenteritis
  3. RINVOQ [Suspect]
     Active Substance: UPADACITINIB
     Indication: Colitis

REACTIONS (2)
  - Illness [None]
  - Therapy interrupted [None]
